FAERS Safety Report 4677201-0 (Version None)
Quarter: 2005Q2

REPORT INFORMATION
  Report Type: 
  Country: None (occurrence: None)
  Receive Date: 20050531
  Receipt Date: 20050518
  Transmission Date: 20051028
  Serious: Yes (Other)
  Sender: FDA-Public Use
  Company Number: FR-JNJFOC-20050404378

PATIENT
  Age: 20 Year
  Sex: Male
  Weight: 59 kg

DRUGS (6)
  1. REMICADE [Suspect]
     Route: 042
  2. REMICADE [Suspect]
     Indication: CROHN'S DISEASE
     Dosage: PATIENT RECEIVED REMICADE FOR 2 AND A HALF YEARS.
     Route: 042
  3. METHOTREXATE [Suspect]
     Route: 050
  4. METHOTREXATE [Suspect]
     Indication: CROHN'S DISEASE
     Route: 050
  5. DEBRIDAT [Concomitant]
     Route: 065
  6. SPECIAFOLDINE [Concomitant]
     Route: 065

REACTIONS (1)
  - HERPES ZOSTER [None]
